FAERS Safety Report 9980286 (Version 1)
Quarter: 2014Q1

REPORT INFORMATION
  Report Type: Spontaneous
  Country: US (occurrence: None)
  Receive Date: 20140305
  Receipt Date: 20140305
  Transmission Date: 20141002
  Serious: Yes (Life-Threatening, Hospitalization)
  Sender: FDA-Public Use
  Company Number: None

PATIENT
  Age: 75 Year
  Sex: Male
  Weight: 117 kg

DRUGS (17)
  1. GABAPENTIN [Suspect]
     Indication: BACK PAIN
     Dosage: 1 CAPSULE TID ORAL
     Route: 048
     Dates: start: 20140224, end: 20140301
  2. FERROUS SULFATE [Concomitant]
  3. VENLAFAXINE XR [Concomitant]
  4. TAMSULOSIN [Concomitant]
  5. PRAVASTATIN [Concomitant]
  6. OMEPRAZOLE [Concomitant]
  7. METOPROLOL [Concomitant]
  8. METOLAZONE [Concomitant]
  9. LOSARTAN [Concomitant]
  10. LEVOTHYROXINE [Concomitant]
  11. ISOSORBIDE MONONITRATE [Concomitant]
  12. GLARGINE INSULIN [Concomitant]
  13. FUROSEMIDE [Concomitant]
  14. OMEGA 3 FATTY ACIDS [Concomitant]
  15. ASPIRIN [Concomitant]
  16. AMLODIPINE [Concomitant]
  17. ALLOPURINOL [Concomitant]

REACTIONS (2)
  - Mental status changes [None]
  - Muscular weakness [None]
